FAERS Safety Report 16813344 (Version 1)
Quarter: 2019Q3

REPORT INFORMATION
  Report Type: Report from Study
  Country: US (occurrence: US)
  Receive Date: 20190916
  Receipt Date: 20190916
  Transmission Date: 20191005
  Serious: Yes (Other)
  Sender: FDA-Public Use
  Company Number: US-BEH-2019106875

PATIENT
  Age: 31 Year
  Sex: Male

DRUGS (1)
  1. HIZENTRA [Suspect]
     Active Substance: HUMAN IMMUNOGLOBULIN G
     Indication: PRIMARY IMMUNODEFICIENCY SYNDROME
     Dosage: UNK
     Route: 058
     Dates: start: 201809

REACTIONS (6)
  - Infusion site erythema [Unknown]
  - Infusion site pain [Unknown]
  - Postural orthostatic tachycardia syndrome [Unknown]
  - Infusion site discomfort [Unknown]
  - Migraine [Unknown]
  - Bipolar disorder [Unknown]
